FAERS Safety Report 9469464 (Version 1)
Quarter: 2013Q3

REPORT INFORMATION
  Report Type: Spontaneous
  Country: AU (occurrence: AU)
  Receive Date: 20130822
  Receipt Date: 20130822
  Transmission Date: 20140515
  Serious: Yes (Other)
  Sender: FDA-Public Use
  Company Number: AU-009507513-1308AUS007907

PATIENT
  Age: 78 Year
  Sex: Male

DRUGS (6)
  1. VYTORIN [Suspect]
     Route: 048
  2. BISOPROLOL FUMARATE [Suspect]
  3. DILANTIN [Suspect]
     Dosage: 3 DAILY
  4. DILANTIN [Suspect]
     Dosage: ONE IN THE MORNING AND ONE IN THE EVENING
  5. WARFARIN SODIUM [Suspect]
  6. AMIODARONE HYDROCHLORIDE [Suspect]

REACTIONS (5)
  - Convulsion [Unknown]
  - Balance disorder [Unknown]
  - Aura [Unknown]
  - Blindness [Unknown]
  - Dysarthria [Unknown]
